FAERS Safety Report 4506171-0 (Version None)
Quarter: 2004Q4

REPORT INFORMATION
  Report Type: 
  Country: None (occurrence: None)
  Receive Date: 20041025
  Receipt Date: 20031119
  Transmission Date: 20050328
  Serious: Yes (Hospitalization)
  Sender: FDA-Public Use
  Company Number: US-JNJFOC-20030703199

PATIENT
  Age: 30 Year
  Sex: Female
  Weight: 70.7611 kg

DRUGS (4)
  1. REMICADE [Suspect]
     Indication: RHEUMATOID ARTHRITIS
     Dosage: 730 MG, 1 IN 1 TOTAL, INTRAVENOUS
     Route: 042
     Dates: start: 20030611
  2. METHOTREXATE [Concomitant]
  3. ARAVA [Concomitant]
  4. PREDNISON (PREDNISONE) TABLETS [Concomitant]

REACTIONS (2)
  - PNEUMOCYSTIS CARINII PNEUMONIA [None]
  - RHEUMATOID ARTHRITIS [None]
